FAERS Safety Report 6434540-0 (Version None)
Quarter: 2009Q4

REPORT INFORMATION
  Report Type: 
  Country: None (occurrence: None)
  Receive Date: 20091110
  Receipt Date: 20091104
  Transmission Date: 20100525
  Serious: Yes (Hospitalization, Congenital Anomaly)
  Sender: FDA-Public Use
  Company Number: A0680566A

PATIENT
  Sex: Female
  Weight: 2.4 kg

DRUGS (3)
  1. PAXIL [Suspect]
     Indication: DEPRESSION
     Dosage: 20MG PER DAY
     Dates: start: 19980101, end: 19990101
  2. VITAMIN TAB [Concomitant]
  3. FERROUS SULFATE TAB [Concomitant]

REACTIONS (11)
  - ATRIAL SEPTAL DEFECT [None]
  - CHOANAL ATRESIA [None]
  - COARCTATION OF THE AORTA [None]
  - CONGENITAL AORTIC ATRESIA [None]
  - DRUG EXPOSURE DURING PREGNANCY [None]
  - HYPOPLASTIC LEFT HEART SYNDROME [None]
  - MITRAL VALVE ATRESIA [None]
  - PATENT DUCTUS ARTERIOSUS [None]
  - PULMONARY ARTERY STENOSIS [None]
  - PULMONARY HYPERTENSION [None]
  - WOLFF-PARKINSON-WHITE SYNDROME [None]
